FAERS Safety Report 6983636-3 (Version None)
Quarter: 2010Q3

REPORT INFORMATION
  Report Type: 
  Country: None (occurrence: None)
  Receive Date: 20100914
  Receipt Date: 20081103
  Transmission Date: 20110219
  Serious: No
  Sender: FDA-Public Use
  Company Number: US-WYE-H06736708

PATIENT
  Age: 74 Year
  Sex: Female
  Weight: 69.01 kg

DRUGS (1)
  1. ADVIL LIQUI-GELS [Suspect]
     Indication: PAIN
     Dosage: 2 TABLETS AT 8 AM AND 2 MORE AT 12 PM
     Route: 048
     Dates: start: 20071201, end: 20071201

REACTIONS (3)
  - CONTUSION [None]
  - LOSS OF CONSCIOUSNESS [None]
  - OVERDOSE [None]
